FAERS Safety Report 25003608 (Version 1)
Quarter: 2025Q1

REPORT INFORMATION
  Report Type: Spontaneous
  Country: US (occurrence: US)
  Receive Date: 20250224
  Receipt Date: 20250224
  Transmission Date: 20250409
  Serious: Yes (Hospitalization, Disabling)
  Sender: MYLAN
  Company Number: US-MYLANLABS-2025M1014048

PATIENT
  Age: 32 Year
  Sex: Female

DRUGS (4)
  1. PREDNISONE [Suspect]
     Active Substance: PREDNISONE
     Indication: Sympathetic ophthalmia
     Dosage: UNK, Q2H (DROPS)
  2. DELTACORTRIL [Suspect]
     Active Substance: PREDNISOLONE
     Indication: Sympathetic ophthalmia
     Dosage: 1 MILLIGRAM/KILOGRAM, QD (5 TABLETS IN THE MORNING AND EVENING)
  3. CYCLOPENTOLATE HYDROCHLORIDE [Suspect]
     Active Substance: CYCLOPENTOLATE HYDROCHLORIDE
     Indication: Sympathetic ophthalmia
  4. NEPAFENAC [Suspect]
     Active Substance: NEPAFENAC
     Indication: Sympathetic ophthalmia

REACTIONS (1)
  - Therapy non-responder [Unknown]
